FAERS Safety Report 9685678 (Version 3)
Quarter: 2013Q4

REPORT INFORMATION
  Report Type: Spontaneous
  Country: US (occurrence: US)
  Receive Date: 20131113
  Receipt Date: 20131122
  Transmission Date: 20140711
  Serious: No
  Sender: FDA-Public Use
  Company Number: US-PFIZER INC-2013320800

PATIENT
  Age: 57 Year
  Sex: Female
  Weight: 68.9 kg

DRUGS (1)
  1. ESTRING [Suspect]
     Indication: OESTROGEN REPLACEMENT THERAPY
     Dosage: UNK
     Dates: start: 20131106, end: 20131106

REACTIONS (2)
  - Vulvovaginal pain [Recovering/Resolving]
  - Vulvovaginal discomfort [Not Recovered/Not Resolved]
